FAERS Safety Report 15049150 (Version 1)
Quarter: 2018Q2

REPORT INFORMATION
  Report Type: Spontaneous
  Country: US (occurrence: US)
  Receive Date: 20180601
  Receipt Date: 20180601
  Transmission Date: 20180711
  Serious: No
  Sender: FDA-Public Use
  Company Number: None

PATIENT
  Age: 76 Year
  Sex: Female
  Weight: 69.85 kg

DRUGS (6)
  1. TYNEOL [Concomitant]
  2. LEVOTHYROXINE. [Suspect]
     Active Substance: LEVOTHYROXINE
     Indication: THYROID HORMONES INCREASED
     Dosage: ?          QUANTITY:1 DF DOSAGE FORM;?
     Route: 048
     Dates: start: 20170131
  3. CHLORIDIAZ/CLIDINUMS [Concomitant]
  4. PROAIR HFA [Concomitant]
     Active Substance: ALBUTEROL SULFATE
  5. GENERIC SYNTHOID [Concomitant]
  6. FUROSIDE [Concomitant]
     Active Substance: FUROSEMIDE

REACTIONS (14)
  - Dyspnoea [None]
  - Abdominal pain upper [None]
  - Cough [None]
  - Fatigue [None]
  - Nausea [None]
  - Osteoporosis [None]
  - Fluid retention [None]
  - Insomnia [None]
  - Peripheral swelling [None]
  - Pruritus [None]
  - Muscular weakness [None]
  - Arthralgia [None]
  - Tremor [None]
  - Nervousness [None]

NARRATIVE: CASE EVENT DATE: 20170131
